FAERS Safety Report 8641115 (Version 4)
Quarter: 2012Q4

REPORT INFORMATION
  Report Type: 
  Country: JP (occurrence: JP)
  Receive Date: 20120628
  Receipt Date: 20120913
  Transmission Date: 20130627
  Serious: Yes (Life-Threatening, Hospitalization)
  Sender: FDA-Public Use
  Company Number: JP-PFIZER INC-2012152652

PATIENT
  Age: 33 Year
  Sex: Male
  Weight: 50.1 kg

DRUGS (8)
  1. XALKORI [Suspect]
     Indication: NON-SMALL CELL LUNG CANCER
     Dosage: 250 mg, 2x/day
     Route: 048
     Dates: start: 20120511, end: 20120523
  2. XALKORI [Suspect]
     Dosage: 250 mg, 2x/day
     Route: 048
     Dates: start: 20120529, end: 20120604
  3. XALKORI [Suspect]
     Dosage: 200 mg, 2x/day
     Route: 048
     Dates: start: 20120610, end: 20120611
  4. MINOFIT [Concomitant]
     Dosage: 40 ml, 1x/day
     Route: 042
     Dates: start: 20120604, end: 20120621
  5. URSODEOXYCHOLIC ACID [Concomitant]
     Dosage: 200 mg, 3x/day
     Route: 048
     Dates: start: 20120608, end: 20120626
  6. DECADRON [Concomitant]
     Dosage: 4 mg, 2x/day
     Route: 048
  7. TAKEPRON OD [Concomitant]
     Dosage: 15 mg, 1x/day
     Route: 048
  8. NAIXAN [Concomitant]
     Dosage: 100 mg, 3x/day
     Route: 048

REACTIONS (1)
  - Interstitial lung disease [Recovering/Resolving]
